FAERS Safety Report 8202488-7 (Version None)
Quarter: 2012Q1

REPORT INFORMATION
  Report Type: 
  Country: None (occurrence: None)
  Receive Date: 20120312
  Receipt Date: 20120312
  Transmission Date: 20120608
  Serious: Yes (Hospitalization)
  Sender: FDA-Public Use
  Company Number: JP-EISAI INC-E2020-10183-CLI-JP

PATIENT
  Sex: Female
  Weight: 52 kg

DRUGS (15)
  1. DONEPEZIL HCL [Suspect]
     Dosage: DOUBLE BLIND
     Route: 048
     Dates: start: 20111229, end: 20120123
  2. COMTAN [Concomitant]
     Indication: PARKINSON'S DISEASE
     Route: 048
  3. VOGLIBOSE [Concomitant]
     Indication: TYPE 2 DIABETES MELLITUS
     Route: 048
     Dates: end: 20120116
  4. GASMOTIN [Concomitant]
     Route: 048
  5. RISUMIC [Concomitant]
     Indication: HYPOTENSION
     Route: 048
  6. GLIMEPIRIDE [Concomitant]
     Indication: TYPE 2 DIABETES MELLITUS
     Route: 048
     Dates: end: 20120117
  7. CRESTOR [Concomitant]
     Route: 048
  8. METFORMIN HCL [Concomitant]
     Indication: TYPE 2 DIABETES MELLITUS
     Route: 048
     Dates: end: 20120116
  9. JANUVIA [Concomitant]
     Route: 048
     Dates: start: 20120126
  10. DONEPEZIL HCL [Suspect]
     Indication: PARKINSON'S DISEASE
     Dosage: DOUBLE BLIND
     Route: 048
     Dates: start: 20111216, end: 20111228
  11. NEODOPASOL [Concomitant]
     Indication: PARKINSON'S DISEASE
     Route: 048
  12. REQUIP [Concomitant]
     Indication: PARKINSON'S DISEASE
     Route: 048
  13. DROXIDOPA [Concomitant]
     Indication: PARKINSON'S DISEASE
     Route: 048
  14. JANUVIA [Concomitant]
     Route: 048
     Dates: start: 20120124, end: 20120125
  15. JANUVIA [Concomitant]
     Route: 048
     Dates: start: 20120117, end: 20120123

REACTIONS (3)
  - DELIRIUM [None]
  - DELUSION [None]
  - PALPITATIONS [None]
